FAERS Safety Report 12286682 (Version 1)
Quarter: 2016Q2

REPORT INFORMATION
  Report Type: Spontaneous
  Country: FR (occurrence: FR)
  Receive Date: 20160420
  Receipt Date: 20160420
  Transmission Date: 20160815
  Serious: Yes (Life-Threatening)
  Sender: FDA-Public Use
  Company Number: FR-009507513-1604FRA010424

PATIENT
  Age: 3 Year
  Sex: Female
  Weight: 17 kg

DRUGS (2)
  1. CHILDRENS ADVIL [Suspect]
     Active Substance: IBUPROFEN
     Dosage: 20 MG/1ML, PRN (STRENGTH REPORTED AS 20MG/1ML)
     Route: 048
     Dates: start: 20160322, end: 20160324
  2. CELESTENE [Suspect]
     Active Substance: BETAMETHASONE
     Dosage: 80 MG, BID
     Dates: start: 20160324, end: 20160325

REACTIONS (1)
  - Pneumonia [Recovered/Resolved]

NARRATIVE: CASE EVENT DATE: 20160327
